FAERS Safety Report 17301378 (Version 1)
Quarter: 2020Q1

REPORT INFORMATION
  Report Type: Spontaneous
  Country: BR (occurrence: BR)
  Receive Date: 20200122
  Receipt Date: 20200122
  Transmission Date: 20200409
  Serious: Yes (Other)
  Sender: FDA-Public Use
  Company Number: BR-NOVOPROD-707789

PATIENT
  Sex: Female
  Weight: 105 kg

DRUGS (5)
  1. NOVOLIN N [Suspect]
     Active Substance: INSULIN HUMAN
     Indication: TYPE 2 DIABETES MELLITUS
     Dosage: 66 IU, QD (16 IU MORNING, 38 IU LUNCH, 12 IU DINNER)
     Route: 065
  2. GLUCOSAMINE + CHONDROITIN [CHONDROITIN SULFATE SODIUM;GLUCOSAMINE HYDR [Concomitant]
     Indication: OSTEOARTHRITIS
     Dosage: 1 TABLET ON THE MORNING AND 1 TABLET AT NIGHT
     Route: 065
  3. TIMOLOL MALEATO [Concomitant]
     Indication: GLAUCOMA
     Dosage: UNK
     Route: 065
  4. METFORMINE [METFORMIN] [Concomitant]
     Active Substance: METFORMIN HYDROCHLORIDE
     Indication: TYPE 2 DIABETES MELLITUS
     Dosage: 2 TABLETS ON THE MORNING AND 2 TABLETS AT NIGHT
     Route: 065
  5. ENALAPRIL [Concomitant]
     Active Substance: ENALAPRIL
     Indication: HYPERTENSION
     Dosage: 10 MG ( 2 TABLETS ON THE MORNING AND 2 TABLETS AT NIGHT)
     Route: 065

REACTIONS (1)
  - Eye oedema [Recovering/Resolving]

NARRATIVE: CASE EVENT DATE: 2018
